FAERS Safety Report 8097443-4 (Version None)
Quarter: 2012Q1

REPORT INFORMATION
  Report Type: 
  Country: None (occurrence: None)
  Receive Date: 20120128
  Receipt Date: 20110627
  Transmission Date: 20120608
  Serious: No
  Sender: FDA-Public Use
  Company Number: US-ABBOTT-11P-163-0734604-00

PATIENT
  Sex: Female

DRUGS (10)
  1. PREDNISONE TAB [Concomitant]
     Indication: PSORIASIS
  2. HUMIRA [Suspect]
     Indication: PSORIATIC ARTHROPATHY
     Dates: start: 20110524
  3. LEVOXYL [Concomitant]
     Indication: HYPOTHYROIDISM
  4. PREDNISONE TAB [Concomitant]
     Indication: PSORIATIC ARTHROPATHY
     Dates: start: 20080701
  5. NADOLOL [Concomitant]
     Indication: HYPERTENSION
     Dosage: PRN
  6. SKELAXIN [Concomitant]
     Indication: MUSCULAR WEAKNESS
  7. HUMIRA [Suspect]
     Indication: PSORIASIS
  8. COUMADIN [Concomitant]
     Indication: THROMBOSIS
  9. SKELAXIN [Concomitant]
     Indication: MUSCLE FATIGUE
  10. SKELAXIN [Concomitant]
     Indication: MUSCLE TIGHTNESS
     Dosage: PRN

REACTIONS (11)
  - ERYTHEMA [None]
  - WEIGHT INCREASED [None]
  - NIPPLE PAIN [None]
  - PREMENSTRUAL SYNDROME [None]
  - FATIGUE [None]
  - PAIN [None]
  - ILL-DEFINED DISORDER [None]
  - VISION BLURRED [None]
  - HEADACHE [None]
  - VISUAL IMPAIRMENT [None]
  - HYPERHIDROSIS [None]
